FAERS Safety Report 8434657-5 (Version None)
Quarter: 2012Q2

REPORT INFORMATION
  Report Type: 
  Country: None (occurrence: None)
  Receive Date: 20120323
  Receipt Date: 20110804
  Transmission Date: 20120825
  Serious: Yes (Hospitalization)
  Sender: FDA-Public Use
  Company Number: 163-21880-11061196

PATIENT
  Age: 60 Year
  Sex: Male

DRUGS (6)
  1. VELCADE [Concomitant]
  2. ZOMETA [Concomitant]
  3. REVLIMID [Suspect]
     Indication: MULTIPLE MYELOMA
     Dosage: 25 MG, DAILY, DAYS 1-14/OFF 7 DAYS, PO
     Route: 048
     Dates: start: 20110404
  4. LOVENOX [Concomitant]
  5. ASPIRIN [Concomitant]
  6. DECADRON [Concomitant]

REACTIONS (2)
  - DEEP VEIN THROMBOSIS [None]
  - BACK PAIN [None]
